FAERS Safety Report 8583616-0 (Version None)
Quarter: 2012Q3

REPORT INFORMATION
  Report Type: 
  Country: None (occurrence: None)
  Receive Date: 20120809
  Receipt Date: 20120612
  Transmission Date: 20120928
  Serious: Yes (Other)
  Sender: FDA-Public Use
  Company Number: US-MSD-2012SP013615

PATIENT

DRUGS (5)
  1. REBETOL [Suspect]
     Dosage: 600 MG, QD
     Dates: start: 20120516
  2. VICTRELIS [Suspect]
     Indication: HEPATITIS C
     Dosage: 2400 MG, QD
     Dates: start: 20111221
  3. PEG-INTRON [Suspect]
     Indication: HEPATITIS C
     Dosage: 180 MICROGRAM, QW
     Route: 058
     Dates: start: 20111021
  4. REBETOL [Suspect]
     Indication: HEPATITIS C
     Dosage: 1200 MG, QD
     Dates: start: 20111021, end: 20120502
  5. REBETOL [Suspect]
     Dosage: 800 MG, QD
     Dates: start: 20120503, end: 20120515

REACTIONS (3)
  - ANAEMIA [None]
  - THROMBOCYTOPENIA [None]
  - LEUKOPENIA [None]
